FAERS Safety Report 17184288 (Version 1)
Quarter: 2019Q4

REPORT INFORMATION
  Report Type: Spontaneous
  Country: GB (occurrence: GB)
  Receive Date: 20191220
  Receipt Date: 20191220
  Transmission Date: 20200122
  Serious: Yes (Other)
  Sender: FDA-Public Use
  Company Number: GB-TEVA-2019-GB-1153963

PATIENT
  Age: 69 Year
  Sex: Female
  Weight: 67 kg

DRUGS (25)
  1. CINNARIZINE [Concomitant]
     Active Substance: CINNARIZINE
     Dosage: TAKE 1-2 TO BE TAKEN THREE TIMES DAILY
     Dates: start: 20190115
  2. OMEPRAZOLE. [Concomitant]
     Active Substance: OMEPRAZOLE
     Dosage: 4 DOSAGE FORMS
     Dates: start: 20150120, end: 20191022
  3. GABAPENTIN. [Concomitant]
     Active Substance: GABAPENTIN
     Dosage: 9 DOSAGE FORMS
     Dates: start: 20150224
  4. LANSOPRAZOLE. [Suspect]
     Active Substance: LANSOPRAZOLE
     Dosage: 30 MG
     Dates: start: 20191104
  5. ESOMEPRAZOLE. [Concomitant]
     Active Substance: ESOMEPRAZOLE MAGNESIUM
     Dosage: ONE OR 2 A DAY
     Dates: start: 20190924, end: 20191022
  6. ALFACALCIDOL [Concomitant]
     Active Substance: ALFACALCIDOL
     Dosage: 1 DOSAGE FORMS
     Dates: start: 20150120
  7. VISCOTEARS [Concomitant]
     Active Substance: CARBOMER
     Dosage: 4 GTT PER DAY
     Dates: start: 20151113
  8. ATORVASTATIN [Concomitant]
     Active Substance: ATORVASTATIN
     Dosage: NIGHT 1 DOSAGE FORMS
     Dates: start: 20161014
  9. ENSTILAR [Concomitant]
     Active Substance: BETAMETHASONE DIPROPIONATE\CALCIPOTRIENE HYDRATE
     Dosage: 1 DOSAGE FORMS
     Dates: start: 20180611, end: 20191106
  10. ACIDEX [Concomitant]
     Active Substance: CALCIUM CARBONATE\SODIUM ALGINATE\SODIUM BICARBONATE
     Dosage: FOUR TIMES A DAY, 10 ML PER DAY
     Dates: start: 20190823, end: 20191022
  11. BECLOMETASONE [Concomitant]
     Active Substance: BECLOMETHASONE DIPROPIONATE
     Dosage: TWICE INTO EACH NOSTRIL , 8 DOSAGE FORMS
     Route: 045
     Dates: start: 20181106
  12. FUROSEMIDE. [Concomitant]
     Active Substance: FUROSEMIDE
     Indication: PERIPHERAL SWELLING
     Dosage: MORNING, 1 DOSAGE FORMS
     Dates: start: 20190924, end: 20191022
  13. PARACETAMOL [Concomitant]
     Active Substance: ACETAMINOPHEN
     Dosage: 2 TO BE TAKEN FOUR TIMES DAILY
     Dates: start: 20150120
  14. BISOPROLOL [Concomitant]
     Active Substance: BISOPROLOL
     Dosage: 1 DOSAGE FORMS
     Dates: start: 20150120
  15. FLUCLOXACILLIN [Concomitant]
     Active Substance: FLUCLOXACILLIN
     Dosage: 4 DOSAGE FORMS
     Dates: start: 20191111
  16. MOMETASONE [Concomitant]
     Active Substance: MOMETASONE
     Dosage: 1 DOSAGE FORMS
     Dates: start: 20190725
  17. LAXIDO [Concomitant]
     Active Substance: POLYETHYLENE GLYCOL 3350\POTASSIUM CHLORIDE\SODIUM BICARBONATE\SODIUM CHLORIDE
     Dosage: 1 OR 2 DAILY
     Dates: start: 20160407
  18. SUDOCREM [Concomitant]
     Active Substance: LANOLIN\ZINC OXIDE
     Indication: INFLAMMATION
     Dosage: 1 DOSAGE FORMS
     Dates: start: 20190315
  19. ORAMORPH [Concomitant]
     Active Substance: MORPHINE SULFATE
     Dosage: 5MLS TWICE DAILY
     Dates: start: 20160218
  20. DAKTACORT [Concomitant]
     Active Substance: HYDROCORTISONE\MICONAZOLE NITRATE
     Dosage: UP TO THREE TIMES DAILY
     Dates: start: 20190924, end: 20191014
  21. GAVISCON ADVANCE [Concomitant]
     Active Substance: POTASSIUM BICARBONATE\SODIUM ALGINATE
     Dosage: 10-20ML NIGHT
     Dates: start: 20191022, end: 20191023
  22. MENTHOL. [Concomitant]
     Active Substance: MENTHOL
     Dosage: APPLY TO THE AFFECTED AREA(S) ONCE OR TWICE A DAY, 1 DOSAGE FORMS
     Dates: start: 20181001, end: 20191031
  23. ZOLPIDEM [Concomitant]
     Active Substance: ZOLPIDEM TARTRATE
     Dosage: ONE OR TWO TO BE TAKEN AT NIGHT
     Dates: start: 20180306
  24. DULOXETINE. [Concomitant]
     Active Substance: DULOXETINE
     Dosage: 2 DOSAGE FORMS
     Dates: start: 20150120
  25. AMOXICILLIN. [Concomitant]
     Active Substance: AMOXICILLIN
     Indication: ANTIBIOTIC THERAPY
     Dosage: 2 DOSAGE FORMS
     Dates: start: 20191009, end: 20191014

REACTIONS (1)
  - Subacute cutaneous lupus erythematosus [Recovering/Resolving]

NARRATIVE: CASE EVENT DATE: 20191115
